FAERS Safety Report 19467907 (Version 1)
Quarter: 2021Q2

REPORT INFORMATION
  Report Type: Spontaneous
  Country: CN (occurrence: CN)
  Receive Date: 20210628
  Receipt Date: 20210628
  Transmission Date: 20210717
  Serious: Yes (Hospitalization, Other)
  Sender: FDA-Public Use
  Company Number: CN-BAXTER-2021BAX017698

PATIENT
  Age: 12 Month
  Sex: Female
  Weight: 8 kg

DRUGS (10)
  1. HOLOXAN [Suspect]
     Active Substance: IFOSFAMIDE
     Dosage: IFOSFAMIDE + 5% GLUCOSE 100 ML
     Route: 041
     Dates: start: 20210605, end: 20210609
  2. 5% GLUCOSE  INJECTION [Suspect]
     Active Substance: DEXTROSE
     Indication: MEDICATION DILUTION
     Dosage: 5% GLUCOSE + IFOSFAMIDE 0.68 G
     Route: 041
     Dates: start: 20210605, end: 20210609
  3. 0.9% SODIUM CHLORIDE INJECTION [Suspect]
     Active Substance: SODIUM CHLORIDE
     Dosage: DOSE RE?INTRODUCED, 0.9% SODIUM CHLORIDE + ETOPOSIDE
     Route: 041
     Dates: start: 202106
  4. ETOPOSIDE. [Suspect]
     Active Substance: ETOPOSIDE
     Indication: EWING^S SARCOMA
     Route: 065
  5. 5% GLUCOSE  INJECTION [Suspect]
     Active Substance: DEXTROSE
     Dosage: DOSE RE?INTRODUCED, 5% GLUCOSE + IFOSFAMIDE
     Route: 041
     Dates: start: 202106
  6. 0.9% SODIUM CHLORIDE INJECTION [Suspect]
     Active Substance: SODIUM CHLORIDE
     Indication: MEDICATION DILUTION
     Dosage: 0.9% SODIUM CHLORIDE + ETOPOSIDE 38 MG
     Route: 041
     Dates: start: 20210605, end: 20210609
  7. HOLOXAN [Suspect]
     Active Substance: IFOSFAMIDE
     Indication: EWING^S SARCOMA
     Route: 065
  8. ETOPOSIDE. [Suspect]
     Active Substance: ETOPOSIDE
     Dosage: DOSE RE?INTRODUCED, ETOPOSIDE + 0.9% SODIUM CHLORIDE
     Route: 041
     Dates: start: 202106
  9. HOLOXAN [Suspect]
     Active Substance: IFOSFAMIDE
     Dosage: DOSE RE?INTRODUCED, IFOSFAMIDE + 5% GLUCOSE
     Route: 041
     Dates: start: 202106
  10. ETOPOSIDE. [Suspect]
     Active Substance: ETOPOSIDE
     Dosage: ETOPOSIDE + 0.9% SODIUM CHLORIDE 250 ML
     Route: 041
     Dates: start: 20210605, end: 20210609

REACTIONS (3)
  - Myelosuppression [Unknown]
  - Agranulocytosis [Recovering/Resolving]
  - White blood cell count decreased [Recovering/Resolving]

NARRATIVE: CASE EVENT DATE: 20210610
